FAERS Safety Report 4541665-3 (Version None)
Quarter: 2004Q4

REPORT INFORMATION
  Report Type: 
  Country: None (occurrence: None)
  Receive Date: 20041230
  Receipt Date: 20041220
  Transmission Date: 20050328
  Serious: Yes (Other)
  Sender: FDA-Public Use
  Company Number: SE-BRISTOL-MYERS SQUIBB COMPANY-12802062

PATIENT

DRUGS (1)
  1. HYDREA [Suspect]
     Indication: MYELOPROLIFERATIVE DISORDER

REACTIONS (2)
  - INFECTION [None]
  - LUNG INFILTRATION [None]
